FAERS Safety Report 5693473-8 (Version None)
Quarter: 2008Q2

REPORT INFORMATION
  Report Type: 
  Country: None (occurrence: None)
  Receive Date: 20080402
  Receipt Date: 20080402
  Transmission Date: 20081010
  Serious: Yes (Hospitalization, Disabling)
  Sender: FDA-Public Use
  Company Number: None

PATIENT
  Age: 47 Year
  Sex: Male
  Weight: 65.7716 kg

DRUGS (1)
  1. KEPPRA [Suspect]
     Indication: ANXIETY

REACTIONS (4)
  - DRUG HYPERSENSITIVITY [None]
  - HEPATIC FAILURE [None]
  - PAIN [None]
  - VOLVULUS [None]
